FAERS Safety Report 7647107-3 (Version None)
Quarter: 2011Q3

REPORT INFORMATION
  Report Type: 
  Country: None (occurrence: None)
  Receive Date: 20110801
  Receipt Date: 20110718
  Transmission Date: 20111222
  Serious: Yes (Other)
  Sender: FDA-Public Use
  Company Number: GB-ROCHE-719754

PATIENT
  Age: 52 Year
  Sex: Female

DRUGS (13)
  1. TRIMETHOPRIM [Concomitant]
  2. TACROLIMUS [Suspect]
     Indication: IMMUNOSUPPRESSION
     Dosage: DRUG WITHDRAWN
     Route: 065
  3. FAMOTIDINE [Concomitant]
  4. METOPROLOL TARTRATE [Concomitant]
  5. MYCOPHENOLATE MOFETIL [Suspect]
     Route: 065
  6. BASILIXIMAB [Suspect]
     Dosage: DISCONTINUED.
     Route: 065
  7. TACROLIMUS [Suspect]
     Route: 065
  8. SIMVASTATIN [Concomitant]
  9. VALGANCICLOVIR [Concomitant]
  10. MYCOPHENOLATE MOFETIL [Suspect]
     Indication: IMMUNOSUPPRESSION
     Dosage: DOSE REDUCED
     Route: 065
  11. BASILIXIMAB [Suspect]
     Indication: IMMUNOSUPPRESSION
     Dosage: DRUG WITHDRAWN
     Route: 065
  12. SIROLIMUS [Suspect]
     Indication: IMMUNOSUPPRESSION
     Dosage: DRUG WITHDRAWN
     Route: 065
  13. HYDRALAZINE HCL [Concomitant]

REACTIONS (3)
  - BONE MARROW OEDEMA [None]
  - FOOT FRACTURE [None]
  - PAIN [None]
